FAERS Safety Report 5318860-9 (Version None)
Quarter: 2007Q2

REPORT INFORMATION
  Report Type: 
  Country: None (occurrence: None)
  Receive Date: 20070508
  Receipt Date: 20070425
  Transmission Date: 20071010
  Serious: Yes (Death)
  Sender: FDA-Public Use
  Company Number: JP-ROCHE-400776

PATIENT
  Age: 94 Year
  Sex: Male

DRUGS (5)
  1. TAMIFLU [Suspect]
     Route: 048
     Dates: start: 20050324, end: 20050324
  2. LOXONIN [Suspect]
     Indication: PYREXIA
     Route: 048
     Dates: start: 20050324, end: 20050324
  3. TICLOPIDINE HCL [Concomitant]
     Route: 048
     Dates: start: 20050305, end: 20050330
  4. PURSENNID [Concomitant]
     Route: 048
     Dates: start: 20050305, end: 20050330
  5. ADALAT [Concomitant]
     Route: 048
     Dates: start: 20050305, end: 20050330

REACTIONS (1)
  - GASTROINTESTINAL HAEMORRHAGE [None]
